FAERS Safety Report 7108676-5 (Version None)
Quarter: 2010Q4

REPORT INFORMATION
  Report Type: 
  Country: None (occurrence: None)
  Receive Date: 20101117
  Receipt Date: 20100924
  Transmission Date: 20110411
  Serious: Yes (Death)
  Sender: FDA-Public Use
  Company Number: TH-ROCHE-741272

PATIENT

DRUGS (2)
  1. XELODA [Suspect]
     Dosage: RECEIVED ONE CYCLE.
     Route: 065
  2. OXALIPLATIN [Concomitant]

REACTIONS (1)
  - DISEASE PROGRESSION [None]
